FAERS Safety Report 8963494 (Version 1)
Quarter: 2012Q4

REPORT INFORMATION
  Report Type: 
  Country: US (occurrence: US)
  Receive Date: 20121213
  Receipt Date: 20121213
  Transmission Date: 20130627
  Serious: Yes (Other)
  Sender: FDA-Public Use
  Company Number: CHPA2012US024731

PATIENT
  Age: 79 Year
  Sex: Female

DRUGS (3)
  1. MYOFLEX ANALGESIC CREME [Suspect]
     Indication: SPINAL FRACTURE
     Dosage: AS DIRECTED, PRN
     Route: 061
     Dates: start: 2007
  2. MORPHINE [Concomitant]
     Indication: PAIN
     Dosage: 1 PILL, A DAY
     Route: 048
     Dates: start: 2009
  3. ASPERCREME [Concomitant]
     Dosage: Unk, Unk
     Dates: start: 2011

REACTIONS (6)
  - Chronic obstructive pulmonary disease [Not Recovered/Not Resolved]
  - Osteoporosis [Not Recovered/Not Resolved]
  - Spinal fracture [Not Recovered/Not Resolved]
  - Fall [Recovered/Resolved]
  - Off label use [Unknown]
  - Expired drug administered [Unknown]
